FAERS Safety Report 12443444 (Version 1)
Quarter: 2016Q2

REPORT INFORMATION
  Report Type: Spontaneous
  Country: DK (occurrence: GB)
  Receive Date: 20160607
  Receipt Date: 20160607
  Transmission Date: 20160815
  Serious: Yes (Hospitalization)
  Sender: FDA-Public Use
  Company Number: GB-FRI-1000085037

PATIENT
  Sex: Female

DRUGS (5)
  1. LANSOPRAZOLE. [Suspect]
     Active Substance: LANSOPRAZOLE
     Indication: PRODUCT USED FOR UNKNOWN INDICATION
     Dosage: OVERDOSE: 60 MG (2 X 30 MG CAPSULES)
     Route: 048
     Dates: start: 20160508, end: 20160508
  2. CITALOPRAM [Suspect]
     Active Substance: CITALOPRAM HYDROBROMIDE
     Indication: PRODUCT USED FOR UNKNOWN INDICATION
     Dosage: OVERDOSE: 80 MG (2 X 40 MG TABLETS)
     Route: 048
     Dates: start: 20160508, end: 20160508
  3. CLOZAPINE. [Suspect]
     Active Substance: CLOZAPINE
     Indication: PRODUCT USED FOR UNKNOWN INDICATION
     Dosage: OVERDOSE: 1850 MG (15 X 100 MG TABLETS PLUS 14 X 25 MG TABLETS)
     Route: 048
     Dates: start: 20160508, end: 20160508
  4. ARIPIPRAZOLE. [Suspect]
     Active Substance: ARIPIPRAZOLE
     Indication: PRODUCT USED FOR UNKNOWN INDICATION
     Dosage: OVERDOSE: 40 MG (4 X 10 MG TABLETS)
     Route: 048
     Dates: start: 20160508, end: 20160508
  5. KWELLS [Suspect]
     Active Substance: SCOPOLAMINE HYDROBROMIDE
     Indication: PRODUCT USED FOR UNKNOWN INDICATION
     Dosage: OVERDOSE: 1500 MCG (5 X 300 MCG TABLETS)
     Route: 048
     Dates: start: 20160508, end: 20160508

REACTIONS (1)
  - Intentional overdose [Recovered/Resolved]

NARRATIVE: CASE EVENT DATE: 20160508
